FAERS Safety Report 11148949 (Version 4)
Quarter: 2015Q3

REPORT INFORMATION
  Report Type: Spontaneous
  Country: US (occurrence: US)
  Receive Date: 20150529
  Receipt Date: 20150806
  Transmission Date: 20151125
  Serious: Yes (Hospitalization, Other)
  Sender: FDA-Public Use
  Company Number: US-009507513-1505USA010216

PATIENT
  Age: 49 Year
  Sex: Female
  Weight: 66 kg

DRUGS (11)
  1. PRISTIQ EXTENDED RELEASE [Suspect]
     Active Substance: DESVENLAFAXINE SUCCINATE
     Indication: ANXIETY
     Dosage: 50 MG, ONCE A DAY
     Route: 048
     Dates: start: 2003
  2. BYSTOLIC [Suspect]
     Active Substance: NEBIVOLOL HYDROCHLORIDE
     Indication: HYPERTENSION
     Dosage: 10 MG, QD
     Route: 048
     Dates: start: 2003
  3. MICARDIS [Suspect]
     Active Substance: TELMISARTAN
     Indication: HYPERTENSION
     Dosage: 10 MG, QD
     Route: 048
     Dates: start: 2003
  4. ASPIRIN. [Suspect]
     Active Substance: ASPIRIN
     Indication: ANTICOAGULANT THERAPY
     Dosage: 81 MG, ONCE A DAY
     Route: 048
     Dates: start: 2003
  5. CADUET [Suspect]
     Active Substance: AMLODIPINE BESYLATE\ATORVASTATIN CALCIUM
  6. MICARDIS [Suspect]
     Active Substance: TELMISARTAN
     Dosage: 80 MG, ONCE A DAY
     Route: 048
     Dates: start: 201505
  7. NORVASC [Suspect]
     Active Substance: AMLODIPINE BESYLATE
  8. ZETIA [Suspect]
     Active Substance: EZETIMIBE
     Indication: BLOOD CHOLESTEROL ABNORMAL
     Dosage: 10 MG, ONCE A DAY
     Route: 048
     Dates: start: 2003
  9. BYSTOLIC [Suspect]
     Active Substance: NEBIVOLOL HYDROCHLORIDE
     Dosage: 10 MG, ONCE A DAY
     Route: 048
     Dates: start: 201505
  10. ZOCOR [Suspect]
     Active Substance: SIMVASTATIN
     Indication: BLOOD CHOLESTEROL ABNORMAL
     Dosage: 80 MG, ONCE A DAY
     Route: 048
     Dates: start: 201011
  11. LIPITOR [Suspect]
     Active Substance: ATORVASTATIN CALCIUM

REACTIONS (5)
  - Myocardial infarction [Recovered/Resolved]
  - Angioplasty [Recovered/Resolved]
  - Myocardial infarction [Recovered/Resolved]
  - Blood pressure abnormal [Recovered/Resolved]
  - Stent placement [Recovered/Resolved]

NARRATIVE: CASE EVENT DATE: 2005
